FAERS Safety Report 4834571-8 (Version None)
Quarter: 2005Q4

REPORT INFORMATION
  Report Type: 
  Country: None (occurrence: None)
  Receive Date: 20051122
  Receipt Date: 20050406
  Transmission Date: 20060501
  Serious: No
  Sender: FDA-Public Use
  Company Number: US-BRISTOL-MYERS SQUIBB COMPANY-12923850

PATIENT
  Age: 50 Year
  Sex: Male

DRUGS (1)
  1. PRAVACHOL [Suspect]
     Indication: BLOOD CHOLESTEROL INCREASED
     Dosage: PATIENT STARTED ON 20MG DAILY AND WAS INCREASED TO 40MG IN DEC-2004
     Dates: start: 20040101

REACTIONS (1)
  - BLOOD BILIRUBIN INCREASED [None]
